FAERS Safety Report 8189898-1 (Version None)
Quarter: 2012Q1

REPORT INFORMATION
  Report Type: 
  Country: None (occurrence: None)
  Receive Date: 20120305
  Receipt Date: 20120221
  Transmission Date: 20120608
  Serious: Yes (Other)
  Sender: FDA-Public Use
  Company Number: 2012020247

PATIENT
  Age: 74 Year
  Sex: Female

DRUGS (4)
  1. FLECAINIDE ACETATE [Suspect]
     Indication: ATRIAL FIBRILLATION
     Dosage: 1 DOSAGE FORMS (1 DOSAGE FORMS, 1 IN 1 D), ORAL
     Route: 048
     Dates: start: 20111117, end: 20111207
  2. ZOLPIDEM [Suspect]
     Indication: INSOMNIA
     Dosage: 1 DOSAGE FORMS (1 DOSAGE FORMS, 1 IN 1 D), ORAL
     Route: 048
     Dates: start: 20111117, end: 20111207
  3. PREVISCAN (FLUINDIONE) [Suspect]
     Indication: ATRIAL FIBRILLATION
     Dosage: 1 DOSAGE FORMS (1 DOSAGE FORMS, 1 IN 1 D)
     Dates: start: 20111117, end: 20111222
  4. TEMERITDUO (NEBIVOLOL, HYDROCHLOROTHIAZIDE) [Suspect]
     Indication: AORTIC VALVE INCOMPETENCE
     Dosage: 1 DOSAGE FORMS (1 DOSAGE FORMS, 1 IN 1 D), ORAL
     Route: 048
     Dates: start: 20111117, end: 20111205

REACTIONS (5)
  - ABDOMINAL PAIN UPPER [None]
  - OROPHARYNGEAL BLISTERING [None]
  - DYSURIA [None]
  - FEELING ABNORMAL [None]
  - DRUG HYPERSENSITIVITY [None]
